FAERS Safety Report 22523934 (Version 1)
Quarter: 2023Q2

REPORT INFORMATION
  Report Type: Report from Study
  Country: US (occurrence: US)
  Receive Date: 20230606
  Receipt Date: 20230606
  Transmission Date: 20230722
  Serious: Yes (Other)
  Sender: FDA-Public Use
  Company Number: US-ABBVIE-4721269

PATIENT
  Sex: Female

DRUGS (2)
  1. HUMIRA [Suspect]
     Active Substance: ADALIMUMAB
     Indication: Crohn^s disease
     Route: 058
     Dates: start: 20221118, end: 2023
  2. HUMIRA [Suspect]
     Active Substance: ADALIMUMAB
     Route: 058
     Dates: start: 20230517

REACTIONS (12)
  - Idiopathic intracranial hypertension [Unknown]
  - Herpes zoster [Recovered/Resolved]
  - Nasopharyngitis [Recovered/Resolved]
  - Stress [Unknown]
  - Swelling [Unknown]
  - Meniere^s disease [Unknown]
  - Crohn^s disease [Unknown]
  - Optic neuritis [Unknown]
  - Lower respiratory tract infection [Recovered/Resolved]
  - Influenza like illness [Recovered/Resolved]
  - Sacral pain [Unknown]
  - Back pain [Unknown]

NARRATIVE: CASE EVENT DATE: 20230101
